FAERS Safety Report 9378057 (Version 1)
Quarter: 2013Q3

REPORT INFORMATION
  Report Type: Spontaneous
  Country: US (occurrence: US)
  Receive Date: 20130701
  Receipt Date: 20130701
  Transmission Date: 20140515
  Serious: No
  Sender: FDA-Public Use
  Company Number: US-US-EMD SERONO, INC.-7089989

PATIENT
  Age: 52 Year
  Sex: Female

DRUGS (2)
  1. REBIF [Suspect]
     Indication: MULTIPLE SCLEROSIS
     Route: 058
     Dates: start: 20110726
  2. REBIF [Suspect]
     Route: 058

REACTIONS (8)
  - Psoriasis [Recovered/Resolved]
  - Seborrhoeic dermatitis [Recovered/Resolved]
  - Insomnia [Unknown]
  - Eye oedema [Unknown]
  - Feeling abnormal [Unknown]
  - Feeling cold [Unknown]
  - Fatigue [Unknown]
  - Chills [Unknown]
